FAERS Safety Report 7996448-9 (Version None)
Quarter: 2011Q4

REPORT INFORMATION
  Report Type: 
  Country: None (occurrence: None)
  Receive Date: 20111220
  Receipt Date: 20060907
  Transmission Date: 20120403
  Serious: Yes (Death)
  Sender: FDA-Public Use
  Company Number: PHHY2006CL009340

PATIENT
  Age: 90 Year
  Sex: Female

DRUGS (2)
  1. VALSARTAN  AND HYDROCHLOROTHIAZIDE [Suspect]
     Indication: HYPERTENSION
     Dosage: VALSARTAN 160 MG+HIDROCLOROTIAZIDE
     Dates: start: 20060601, end: 20060601
  2. NIFEDIPINE [Concomitant]

REACTIONS (1)
  - PANCREATIC CARCINOMA [None]
